FAERS Safety Report 10210466 (Version 1)
Quarter: 2014Q2

REPORT INFORMATION
  Report Type: Spontaneous
  Country: US (occurrence: None)
  Receive Date: 20140529
  Receipt Date: 20140529
  Transmission Date: 20141212
  Serious: Yes (Hospitalization)
  Sender: FDA-Public Use
  Company Number: None

PATIENT
  Age: 12 Year
  Sex: Male
  Weight: 56.3 kg

DRUGS (5)
  1. CYTARABINE [Suspect]
     Dates: end: 20140421
  2. DAUNORUBICIN [Suspect]
     Dates: end: 20140507
  3. METHOTREXATE [Suspect]
     Dates: end: 20140430
  4. PREDNISONE [Suspect]
     Dates: end: 20140510
  5. VINCRISTINE SULFATE [Suspect]
     Dates: end: 20140507

REACTIONS (16)
  - Constipation [None]
  - Drug intolerance [None]
  - Burning sensation [None]
  - Abdominal pain [None]
  - Pain [None]
  - Pyrexia [None]
  - Hyponatraemia [None]
  - Hypotension [None]
  - Tachypnoea [None]
  - Colitis [None]
  - Localised intraabdominal fluid collection [None]
  - Gastrointestinal sounds abnormal [None]
  - Abdominal tenderness [None]
  - Abdominal pain [None]
  - Thrombophlebitis [None]
  - Gastrointestinal perforation [None]
